FAERS Safety Report 9379250 (Version 1)
Quarter: 2013Q3

REPORT INFORMATION
  Report Type: Spontaneous
  Country: US (occurrence: US)
  Receive Date: 20130702
  Receipt Date: 20130702
  Transmission Date: 20140515
  Serious: Yes (Other)
  Sender: FDA-Public Use
  Company Number: US-JNJFOC-20130613351

PATIENT
  Sex: 0

DRUGS (5)
  1. DOXORUBICIN [Suspect]
     Indication: SARCOMA
     Dosage: WEEKLY
     Route: 042
  2. TEMSIROLIMUS [Suspect]
     Indication: SARCOMA
     Route: 042
  3. TEMSIROLIMUS [Suspect]
     Indication: SARCOMA
     Route: 042
  4. TEMSIROLIMUS [Suspect]
     Indication: SARCOMA
     Dosage: WEEKLY
     Route: 042
  5. DIPHENHYDRAMINE [Concomitant]
     Indication: PROPHYLAXIS
     Route: 065

REACTIONS (6)
  - Neutropenia [Recovered/Resolved]
  - Hypophosphataemia [Recovered/Resolved]
  - Transaminases increased [Recovered/Resolved]
  - Thrombocytopenia [Recovered/Resolved]
  - Hypokalaemia [Recovered/Resolved]
  - Off label use [Unknown]
